FAERS Safety Report 21371315 (Version 2)
Quarter: 2022Q4

REPORT INFORMATION
  Report Type: Spontaneous
  Country: US (occurrence: US)
  Receive Date: 20220923
  Receipt Date: 20221118
  Transmission Date: 20230113
  Serious: Yes (Hospitalization)
  Sender: FDA-Public Use
  Company Number: US-ELI_LILLY_AND_COMPANY-US202209006953

PATIENT
  Age: 39 Year
  Sex: Female

DRUGS (1)
  1. TALTZ [Suspect]
     Active Substance: IXEKIZUMAB
     Indication: Ankylosing spondylitis
     Dosage: 80 MG, UNKNOWN
     Route: 058
     Dates: start: 202206, end: 202208

REACTIONS (5)
  - Road traffic accident [Unknown]
  - Pulmonary contusion [Unknown]
  - Facial bones fracture [Unknown]
  - Lower limb fracture [Unknown]
  - Contusion [Unknown]

NARRATIVE: CASE EVENT DATE: 20220827
